FAERS Safety Report 9735504 (Version 3)
Quarter: 2015Q3

REPORT INFORMATION
  Report Type: Spontaneous
  Country: US (occurrence: US)
  Receive Date: 20131206
  Receipt Date: 20150804
  Transmission Date: 20151125
  Serious: No
  Sender: FDA-Public Use
  Company Number: US-GILEAD-2009-0023264

PATIENT
  Age: 69 Year
  Sex: Female

DRUGS (19)
  1. ZOLOFT [Concomitant]
     Active Substance: SERTRALINE HYDROCHLORIDE
  2. PLAVIX [Concomitant]
     Active Substance: CLOPIDOGREL BISULFATE
  3. MULTIVITAMIN [Concomitant]
     Active Substance: VITAMINS
  4. MACRODANTIN [Suspect]
     Active Substance: NITROFURANTOIN
  5. ALBUTEROL. [Concomitant]
     Active Substance: ALBUTEROL
  6. NITROLINGUAL [Concomitant]
     Active Substance: NITROGLYCERIN
  7. CARVEDILOL. [Concomitant]
     Active Substance: CARVEDILOL
  8. ADVAIR DISKU MIS [Concomitant]
  9. NEXIUM [Concomitant]
     Active Substance: ESOMEPRAZOLE MAGNESIUM
  10. CALCIUM + VITAMIN D [Concomitant]
     Active Substance: CALCIUM\VITAMIN D
  11. MICARDIS [Concomitant]
     Active Substance: TELMISARTAN
  12. ZETIA [Concomitant]
     Active Substance: EZETIMIBE
  13. ASPIRIN ADULT [Concomitant]
  14. LETAIRIS [Suspect]
     Active Substance: AMBRISENTAN
     Indication: PULMONARY ARTERIAL HYPERTENSION
     Route: 048
     Dates: start: 20090615
  15. LASIX [Concomitant]
     Active Substance: FUROSEMIDE
  16. ATACAND [Concomitant]
     Active Substance: CANDESARTAN CILEXETIL
  17. SPIRONOLACTONE. [Concomitant]
     Active Substance: SPIRONOLACTONE
  18. MUCINEX [Concomitant]
     Active Substance: GUAIFENESIN
  19. URSO FORTE [Concomitant]
     Active Substance: URSODIOL

REACTIONS (2)
  - Platelet count decreased [Recovered/Resolved]
  - White blood cell count decreased [Recovered/Resolved]
